FAERS Safety Report 8145063-5 (Version None)
Quarter: 2012Q1

REPORT INFORMATION
  Report Type: 
  Country: None (occurrence: None)
  Receive Date: 20120217
  Receipt Date: 20120207
  Transmission Date: 20120608
  Serious: Yes (Other)
  Sender: FDA-Public Use
  Company Number: PHHY2012DE013409

PATIENT
  Sex: Female
  Weight: 60 kg

DRUGS (7)
  1. RASILEZ [Suspect]
     Indication: HYPERTENSION
     Dosage: 150 MG, PER DAY
     Dates: start: 20081106
  2. DIOVAN HCT [Suspect]
     Dosage: 1 DF, PER DAY
     Dates: start: 20080528, end: 20100126
  3. BETA BLOCKING AGENTS [Concomitant]
  4. CALCIUM CHANNEL BLOCKERS [Concomitant]
  5. DIURETICS [Concomitant]
     Dates: start: 20090707
  6. ANTIDEPRESSANTS [Concomitant]
  7. STATINS [Concomitant]

REACTIONS (2)
  - RENAL FAILURE ACUTE [None]
  - BLOOD CREATININE INCREASED [None]
